FAERS Safety Report 22777981 (Version 3)
Quarter: 2023Q4

REPORT INFORMATION
  Report Type: Spontaneous
  Country: US (occurrence: US)
  Receive Date: 20230802
  Receipt Date: 20231115
  Transmission Date: 20240110
  Serious: No
  Sender: FDA-Public Use
  Company Number: US-PFIZER INC-202300263023

PATIENT
  Age: 11 Year
  Sex: Female

DRUGS (1)
  1. GENOTROPIN [Suspect]
     Active Substance: SOMATROPIN
     Dosage: 2 MG, DAILY [2.0 MG 7 DAYS PER WEEK]

REACTIONS (3)
  - Device difficult to use [Unknown]
  - Device mechanical issue [Unknown]
  - Device breakage [Unknown]
